FAERS Safety Report 7402788-4 (Version None)
Quarter: 2011Q2

REPORT INFORMATION
  Report Type: 
  Country: None (occurrence: None)
  Receive Date: 20110408
  Receipt Date: 20110330
  Transmission Date: 20111010
  Serious: Yes (Hospitalization, Disabling, Other)
  Sender: FDA-Public Use
  Company Number: JP-MILLENNIUM PHARMACEUTICALS, INC.-2011-00651

PATIENT

DRUGS (17)
  1. PURSENNID                          /00142207/ [Concomitant]
     Indication: CONSTIPATION
     Dosage: 24 MG, UNK
     Route: 048
     Dates: start: 20110131, end: 20110215
  2. MAGLAX [Concomitant]
     Indication: CONSTIPATION
     Dosage: 990 MG, UNK
     Route: 048
     Dates: start: 20110207, end: 20110215
  3. MORPHINE HYDROCHLORIDE [Concomitant]
     Indication: ULCER
     Dosage: 30 MG, UNK
     Dates: start: 20110213, end: 20110216
  4. NOVORAPID [Concomitant]
     Indication: DIABETES MELLITUS
     Dosage: 15 IU, UNK
     Route: 058
     Dates: start: 20110214, end: 20110215
  5. OMEPRAL                            /00661201/ [Concomitant]
     Indication: PROPHYLAXIS
     Dosage: 20 MG, UNK
     Route: 048
     Dates: start: 20110201, end: 20110215
  6. AMARYL [Suspect]
     Indication: DIABETES MELLITUS
     Dosage: 2 MG, UNK
     Route: 048
     Dates: start: 20110129, end: 20110214
  7. VFEND [Suspect]
     Indication: PROPHYLAXIS
     Dosage: 200 MG, UNK
     Route: 048
     Dates: start: 20110207, end: 20110207
  8. MUCOSTA [Concomitant]
     Dosage: 300 MG, UNK
     Route: 048
     Dates: start: 20110201, end: 20110215
  9. ALKERAN [Concomitant]
     Indication: MULTIPLE MYELOMA
     Dosage: 12 MG, UNK
     Route: 048
     Dates: start: 20110214, end: 20110217
  10. VELCADE [Suspect]
     Indication: MULTIPLE MYELOMA
     Dosage: 1.3 MG/M2, UNK
     Route: 042
     Dates: start: 20110214, end: 20110214
  11. DEXAMETHASONE [Concomitant]
     Dosage: UNK
     Route: 048
     Dates: start: 20110131, end: 20110203
  12. LOXONIN                            /00890701/ [Concomitant]
     Indication: PAIN
     Dosage: 180 MG, UNK
     Route: 048
     Dates: start: 20110201, end: 20110215
  13. VALTREX [Concomitant]
     Indication: PROPHYLAXIS
     Dosage: 500 MG, UNK
     Route: 048
     Dates: start: 20110214, end: 20110218
  14. JANUVIA [Suspect]
     Indication: DIABETES MELLITUS
     Dosage: 50 MG, UNK
     Route: 048
     Dates: start: 20110129, end: 20110215
  15. BAKTAR [Concomitant]
     Indication: PROPHYLAXIS
     Dosage: UNK
     Route: 048
     Dates: start: 20110131, end: 20110215
  16. PREDONINE                          /00016201/ [Concomitant]
     Indication: MULTIPLE MYELOMA
     Dosage: 60 MG, UNK
     Route: 048
     Dates: start: 20110214, end: 20110217
  17. VFEND [Suspect]
     Dosage: 400 MG, UNK
     Route: 048
     Dates: start: 20110208, end: 20110215

REACTIONS (4)
  - BRONCHITIS [None]
  - DYSPHAGIA [None]
  - PLEURAL EFFUSION [None]
  - HYPOGLYCAEMIA [None]
